FAERS Safety Report 7042842-2 (Version None)
Quarter: 2010Q4

REPORT INFORMATION
  Report Type: 
  Country: None (occurrence: None)
  Receive Date: 20101013
  Receipt Date: 20100708
  Transmission Date: 20110411
  Serious: No
  Sender: FDA-Public Use
  Company Number: US-ASTRAZENECA-2010SE31804

PATIENT
  Age: 57 Year
  Sex: Female

DRUGS (2)
  1. SYMBICORT [Suspect]
     Indication: ASTHMA
     Dosage: 160/4.5 MCG TWO PUFFS
     Route: 055
     Dates: start: 20080101
  2. COMBIVENT [Concomitant]

REACTIONS (3)
  - EXPIRED DRUG ADMINISTERED [None]
  - PRURITUS [None]
  - URTICARIA [None]
